FAERS Safety Report 20375411 (Version 4)
Quarter: 2022Q1

REPORT INFORMATION
  Report Type: Spontaneous
  Country: US (occurrence: US)
  Receive Date: 20220125
  Receipt Date: 20220222
  Transmission Date: 20220423
  Serious: Yes (Other)
  Sender: FDA-Public Use
  Company Number: US-ORGANON-O2201USA001520

PATIENT
  Age: 31 Year
  Sex: Female

DRUGS (1)
  1. NEXPLANON [Suspect]
     Active Substance: ETONOGESTREL
     Indication: Contraception
     Dosage: ONE IMPLANT EVERY THREE YEARS
     Route: 059
     Dates: start: 20210427, end: 20220119

REACTIONS (5)
  - Cellulitis [Recovered/Resolved]
  - General anaesthesia [Unknown]
  - Complication of device removal [Recovered/Resolved]
  - Pain in extremity [Recovering/Resolving]
  - Menstruation irregular [Unknown]

NARRATIVE: CASE EVENT DATE: 20220114
